FAERS Safety Report 21686819 (Version 1)
Quarter: 2022Q4

REPORT INFORMATION
  Report Type: Spontaneous
  Country: GB (occurrence: GB)
  Receive Date: 20221206
  Receipt Date: 20221206
  Transmission Date: 20230113
  Serious: No
  Sender: FDA-Public Use
  Company Number: None

PATIENT
  Age: 36 Year
  Sex: Female
  Weight: 96 kg

DRUGS (15)
  1. TOLVAPTAN [Suspect]
     Active Substance: TOLVAPTAN
     Indication: Congenital cystic kidney disease
     Dosage: 30 MILLIGRAM TABLET (UNCOATED)
     Route: 048
     Dates: start: 20190410
  2. TOLVAPTAN [Suspect]
     Active Substance: TOLVAPTAN
     Dosage: 45 MILLIGRAM TABLET (UNCOATED)
     Route: 048
     Dates: start: 20190213
  3. TOLVAPTAN [Suspect]
     Active Substance: TOLVAPTAN
     Dosage: 15 MILLIGRAM TABLET (UNCOATED)
     Route: 048
     Dates: start: 20190213
  4. TOLVAPTAN [Suspect]
     Active Substance: TOLVAPTAN
     Dosage: 90 MILLIGRAM TABLET (UNCOATED)
     Route: 048
     Dates: start: 20190410
  5. TOLVAPTAN [Suspect]
     Active Substance: TOLVAPTAN
     Dosage: 30 MILLIGRAM TABLET (UNCOATED)
     Route: 048
     Dates: start: 20190313
  6. TOLVAPTAN [Suspect]
     Active Substance: TOLVAPTAN
     Dosage: 60 MILLIGRAM TABLET (UNCOATED)
     Route: 048
     Dates: start: 20190313
  7. AMLODIPINE [Concomitant]
     Active Substance: AMLODIPINE BESYLATE
     Indication: Product used for unknown indication
     Dosage: 5 MILLIGRAM, QD
     Route: 048
     Dates: start: 20191230
  8. ATORVASTATIN [Concomitant]
     Active Substance: ATORVASTATIN
     Indication: Chronic kidney disease
     Dosage: 20 MILLIGRAM, QD
     Route: 048
     Dates: start: 20191009
  9. CANDESARTAN [Concomitant]
     Active Substance: CANDESARTAN
     Indication: Product used for unknown indication
     Dosage: 8 MILLIGRAM, QD
     Route: 048
     Dates: start: 20190814
  10. CEPHALEXIN [Concomitant]
     Active Substance: CEPHALEXIN
     Indication: Product used for unknown indication
     Dosage: 250 MILLIGRAM, QID
     Route: 048
     Dates: start: 20200107, end: 20200117
  11. OMEPRAZOLE [Concomitant]
     Active Substance: OMEPRAZOLE
     Indication: Dyspepsia
     Dosage: 20 MILLIGRAM, QD
     Route: 048
     Dates: start: 20200826
  12. PREDNISOLONE [Concomitant]
     Active Substance: PREDNISOLONE
     Indication: Product used for unknown indication
     Dosage: 40 MILLIGRAM, QD
     Route: 048
     Dates: start: 20190814, end: 20190824
  13. RAMIPRIL [Concomitant]
     Active Substance: RAMIPRIL
     Indication: Product used for unknown indication
     Dosage: 2.5 MILLIGRAM, QD
     Route: 048
     Dates: start: 2008, end: 20190411
  14. RAMIPRIL [Concomitant]
     Active Substance: RAMIPRIL
     Dosage: 5 MILLIGRAM, QD
     Route: 048
     Dates: start: 20190411, end: 20190606
  15. RAMIPRIL [Concomitant]
     Active Substance: RAMIPRIL
     Dosage: 10 MILLIGRAM, QD
     Route: 048
     Dates: start: 20190606, end: 20190814

REACTIONS (7)
  - Abdominal distension [Not Recovered/Not Resolved]
  - Alopecia [Not Recovered/Not Resolved]
  - Blood creatinine increased [Recovered/Resolved]
  - Lower respiratory tract infection [Not Recovered/Not Resolved]
  - Onychoclasis [Not Recovered/Not Resolved]
  - Renal pain [Not Recovered/Not Resolved]
  - Transaminases increased [Recovered/Resolved]

NARRATIVE: CASE EVENT DATE: 20190220
